FAERS Safety Report 9716126 (Version 1)
Quarter: 2013Q4

REPORT INFORMATION
  Report Type: Spontaneous
  Country: US (occurrence: None)
  Receive Date: 20131126
  Receipt Date: 20131126
  Transmission Date: 20140711
  Serious: Yes (Other)
  Sender: FDA-Public Use
  Company Number: None

PATIENT
  Age: 66 Year
  Sex: Male
  Weight: 48 kg

DRUGS (1)
  1. AMIODARONE [Suspect]
     Indication: HYPERTENSION
     Route: 048
     Dates: end: 20131114

REACTIONS (2)
  - Pulmonary fibrosis [None]
  - Hepatic enzyme increased [None]
